FAERS Safety Report 21169839 (Version 1)
Quarter: 2022Q3

REPORT INFORMATION
  Report Type: Spontaneous
  Country: US (occurrence: US)
  Receive Date: 20220804
  Receipt Date: 20220804
  Transmission Date: 20221027
  Serious: Yes (Other)
  Sender: FDA-Public Use
  Company Number: US-CHIESI-2022CHF03243

PATIENT

DRUGS (2)
  1. KENGREAL [Suspect]
     Active Substance: CANGRELOR
     Indication: Product used for unknown indication
     Dosage: UNK
     Route: 042
  2. INTEGRILIN [Suspect]
     Active Substance: EPTIFIBATIDE
     Indication: Product used for unknown indication
     Dosage: UNK

REACTIONS (2)
  - Vascular access site haemorrhage [Unknown]
  - Off label use [Unknown]
